FAERS Safety Report 6877703-2 (Version None)
Quarter: 2010Q3

REPORT INFORMATION
  Report Type: 
  Country: None (occurrence: None)
  Receive Date: 20100727
  Receipt Date: 20100524
  Transmission Date: 20110219
  Serious: No
  Sender: FDA-Public Use
  Company Number: US-ABBOTT-10P-163-0647717-00

PATIENT
  Sex: Female
  Weight: 34.05 kg

DRUGS (2)
  1. SYNTHROID [Suspect]
     Indication: HYPOTHYROIDISM
     Dates: start: 19800101
  2. UNKNOWN CORTISONE SPRAY (FLUGICSANE) [Suspect]
     Indication: HYPERSENSITIVITY
     Route: 055

REACTIONS (5)
  - ANGER [None]
  - DIZZINESS [None]
  - HEART RATE DECREASED [None]
  - THIRST [None]
  - TREMOR [None]
